FAERS Safety Report 9231264 (Version 2)
Quarter: 2013Q2

REPORT INFORMATION
  Report Type: Report from Study
  Country: US (occurrence: US)
  Receive Date: 20130415
  Receipt Date: 20130520
  Transmission Date: 20140414
  Serious: Yes (Hospitalization)
  Sender: FDA-Public Use
  Company Number: US-ROCHE-1213305

PATIENT
  Age: 43 Year
  Sex: Female
  Weight: 64.92 kg

DRUGS (10)
  1. XOLAIR [Suspect]
     Indication: ASTHMA
     Route: 030
     Dates: start: 20121129
  2. XOLAIR [Suspect]
     Route: 058
     Dates: start: 20121212
  3. XOLAIR [Suspect]
     Route: 030
     Dates: start: 20121228
  4. XOLAIR [Suspect]
     Route: 030
     Dates: start: 20130309
  5. XOLAIR [Suspect]
     Route: 030
     Dates: start: 20130403
  6. XOPENEX HFA [Concomitant]
     Indication: ASTHMA
     Route: 065
  7. ADVAIR [Concomitant]
     Indication: ASTHMA
     Dosage: 250/50
     Route: 065
  8. PULMICORT RESPULES [Concomitant]
     Indication: ASTHMA
     Dosage: VAILS
     Route: 065
  9. LODRANE [Concomitant]
     Route: 048
  10. SINGULAIR [Concomitant]
     Indication: ASTHMA
     Dosage: TGD
     Route: 048

REACTIONS (2)
  - Pneumonia [Recovered/Resolved]
  - Organising pneumonia [Unknown]
